FAERS Safety Report 9097357 (Version 3)
Quarter: 2013Q2

REPORT INFORMATION
  Report Type: Spontaneous
  Country: ES (occurrence: ES)
  Receive Date: 20130212
  Receipt Date: 20130409
  Transmission Date: 20140414
  Serious: Yes (Other)
  Sender: FDA-Public Use
  Company Number: ES-PFIZER INC-2013037721

PATIENT
  Age: 43 Year
  Sex: Female

DRUGS (1)
  1. CHAMPIX [Suspect]
     Indication: SMOKING CESSATION THERAPY
     Dosage: UNK
     Route: 048
     Dates: start: 20130122, end: 20130127

REACTIONS (4)
  - Face oedema [Recovered/Resolved]
  - Eczema [Recovered/Resolved]
  - Toxicity to various agents [Recovered/Resolved]
  - Skin reaction [Recovered/Resolved]
